FAERS Safety Report 6831254-X (Version None)
Quarter: 2010Q2

REPORT INFORMATION
  Report Type: 
  Country: None (occurrence: None)
  Receive Date: 20100520
  Receipt Date: 20090331
  Transmission Date: 20101027
  Serious: Yes (Other)
  Sender: FDA-Public Use
  Company Number: 2009193577

PATIENT
  Sex: Female

DRUGS (9)
  1. PROVERA [Suspect]
     Indication: HORMONE REPLACEMENT THERAPY
     Dosage: 2.5-10 MG
     Dates: start: 19920101, end: 19980101
  2. PROVERA [Suspect]
     Indication: MENOPAUSE
     Dosage: 2.5-10 MG
     Dates: start: 19920101, end: 19980101
  3. PREMARIN [Suspect]
     Indication: HORMONE REPLACEMENT THERAPY
     Dates: start: 19920101, end: 19980101
  4. PREMARIN [Suspect]
     Indication: MENOPAUSE
     Dates: start: 19920101, end: 19980101
  5. PREMPRO [Suspect]
     Indication: HORMONE REPLACEMENT THERAPY
     Dates: start: 19980101, end: 20010101
  6. ZOLOFT [Concomitant]
  7. AZMACORT [Concomitant]
  8. ZYRTEC [Concomitant]
  9. CELEBREX [Concomitant]

REACTIONS (1)
  - BREAST CANCER [None]
